FAERS Safety Report 7500767-X (Version None)
Quarter: 2011Q2

REPORT INFORMATION
  Report Type: 
  Country: None (occurrence: None)
  Receive Date: 20110524
  Receipt Date: 20110517
  Transmission Date: 20111010
  Serious: Yes (Death, Other)
  Sender: FDA-Public Use
  Company Number: PHHY2011US42945

PATIENT
  Sex: Female
  Weight: 1.83 kg

DRUGS (3)
  1. ATENOLOL [Suspect]
     Dosage: MATERNAL DOSE: 75 MG/D
     Route: 064
  2. VALSARTAN [Suspect]
     Dosage: MATERNAL DOSE: 80 MG/D
     Route: 064
  3. MISOPROSTOL [Concomitant]
     Dosage: UNK
     Route: 064

REACTIONS (5)
  - NEPHROPATHY TOXIC [None]
  - STILLBIRTH [None]
  - RENAL DISORDER [None]
  - PULMONARY HYPOPLASIA [None]
  - DRUG EXPOSURE DURING PREGNANCY [None]
